FAERS Safety Report 24183762 (Version 6)
Quarter: 2025Q1

REPORT INFORMATION
  Report Type: Spontaneous
  Country: JP (occurrence: JP)
  Receive Date: 20240807
  Receipt Date: 20250203
  Transmission Date: 20250408
  Serious: Yes (Hospitalization)
  Sender: PFIZER
  Company Number: JP-PFIZER INC-PV202400102053

PATIENT
  Age: 65 Year
  Sex: Male
  Weight: 107.6 kg

DRUGS (3)
  1. LORBRENA [Suspect]
     Active Substance: LORLATINIB
     Indication: Lung neoplasm malignant
     Dosage: 100 MG, 1X/DAY
     Route: 048
     Dates: start: 20240425, end: 20240802
  2. PIOGLITAZONE [Concomitant]
     Active Substance: PIOGLITAZONE
  3. TENELIGLIPTIN [Concomitant]
     Active Substance: TENELIGLIPTIN

REACTIONS (6)
  - Hyperglycaemia [Recovered/Resolved]
  - Diabetic ketoacidosis [Recovered/Resolved]
  - Diabetes mellitus inadequate control [Recovering/Resolving]
  - Affective disorder [Recovered/Resolved]
  - Hypercholesterolaemia [Recovered/Resolved]
  - Hypertriglyceridaemia [Recovered/Resolved]

NARRATIVE: CASE EVENT DATE: 20240801
